FAERS Safety Report 9855255 (Version 1)
Quarter: 2014Q1

REPORT INFORMATION
  Report Type: Spontaneous
  Country: DE (occurrence: DE)
  Receive Date: 20140130
  Receipt Date: 20140130
  Transmission Date: 20141002
  Serious: Yes (Hospitalization)
  Sender: FDA-Public Use
  Company Number: DE-UCBSA-110798

PATIENT
  Age: 55 Year
  Sex: Female

DRUGS (5)
  1. ROTIGOTINE [Suspect]
     Indication: PARKINSON^S DISEASE
     Dosage: DOSE: 8 MG/24 HOURS
     Route: 062
     Dates: start: 201302, end: 201311
  2. STALEVO [Concomitant]
     Indication: PARKINSON^S DISEASE
     Dosage: 100-75-75
     Route: 048
     Dates: start: 2008
  3. RAMIPRIL [Concomitant]
     Indication: HYPERTENSION
     Dates: start: 2005
  4. BISOPROLOL [Concomitant]
     Indication: HYPERTENSION
     Dates: start: 2005
  5. CLARIUM [Concomitant]
     Indication: PARKINSON^S DISEASE
     Route: 048
     Dates: start: 2008

REACTIONS (3)
  - Gingivitis ulcerative [Recovering/Resolving]
  - Glossitis [Recovering/Resolving]
  - Mass [Recovering/Resolving]
